FAERS Safety Report 16007070 (Version 3)
Quarter: 2022Q1

REPORT INFORMATION
  Report Type: Spontaneous
  Country: US (occurrence: US)
  Receive Date: 20190226
  Receipt Date: 20220301
  Transmission Date: 20220424
  Serious: Yes (Hospitalization, Other)
  Sender: FDA-Public Use
  Company Number: PHEH2019US008456

PATIENT
  Sex: Male

DRUGS (1)
  1. TASIGNA [Suspect]
     Active Substance: NILOTINIB
     Indication: Chronic myeloid leukaemia
     Dosage: 300 MG, BID
     Route: 048
     Dates: start: 20120316

REACTIONS (40)
  - Pneumonia [Unknown]
  - Myocardial infarction [Unknown]
  - Mitral valve incompetence [Unknown]
  - Aortic valve incompetence [Unknown]
  - Carotid artery disease [Unknown]
  - Narcolepsy [Unknown]
  - Mixed deafness [Unknown]
  - Cervical spinal stenosis [Unknown]
  - Iliac artery stenosis [Unknown]
  - Cardiac failure congestive [Unknown]
  - Renal failure [Unknown]
  - Deep vein thrombosis [Unknown]
  - Coronary artery stenosis [Unknown]
  - Cholelithiasis [Unknown]
  - Aortic aneurysm [Unknown]
  - Chronic sinusitis [Unknown]
  - Aortic valve stenosis [Unknown]
  - Eustachian tube dysfunction [Unknown]
  - Cervical radiculopathy [Unknown]
  - Gait disturbance [Unknown]
  - Sciatica [Unknown]
  - Hypoaesthesia [Unknown]
  - Neck pain [Unknown]
  - Muscular weakness [Unknown]
  - Intermittent claudication [Unknown]
  - Restless legs syndrome [Unknown]
  - Tachycardia [Unknown]
  - Dyspnoea [Unknown]
  - Haemorrhoids [Unknown]
  - Injury [Unknown]
  - Back pain [Unknown]
  - Chest pain [Unknown]
  - Generalised oedema [Unknown]
  - Arteriosclerosis [Unknown]
  - Anaemia [Unknown]
  - Anxiety [Unknown]
  - Fatigue [Unknown]
  - Bronchitis chronic [Unknown]
  - Pain [Unknown]
  - Emotional distress [Unknown]
